FAERS Safety Report 5292891-X (Version None)
Quarter: 2007Q1

REPORT INFORMATION
  Report Type: 
  Country: None (occurrence: None)
  Receive Date: 20070116
  Receipt Date: 20060815
  Transmission Date: 20070707
  Serious: Yes (Other)
  Sender: FDA-Public Use
  Company Number: HQWYE600131MAR05

PATIENT
  Age: 63 Year
  Sex: Female

DRUGS (3)
  1. PREMPRO [Suspect]
     Indication: MENOPAUSAL SYMPTOMS
     Dosage: UNSPECIFIED; ORAL
     Route: 048
     Dates: start: 19970101, end: 20030101
  2. CYCRIN [Suspect]
  3. FEMHRT [Suspect]

REACTIONS (1)
  - BREAST CANCER [None]
